FAERS Safety Report 8231800-8 (Version None)
Quarter: 2012Q1

REPORT INFORMATION
  Report Type: 
  Country: None (occurrence: None)
  Receive Date: 20120323
  Receipt Date: 20120313
  Transmission Date: 20120608
  Serious: Yes (Disabling)
  Sender: FDA-Public Use
  Company Number: FR-ROCHE-1048784

PATIENT
  Sex: Female

DRUGS (10)
  1. HERCEPTIN [Suspect]
     Indication: PRODUCT USED FOR UNKNOWN INDICATION
     Route: 042
     Dates: start: 20080211, end: 20090116
  2. FLUOROURACIL [Suspect]
     Indication: PRODUCT USED FOR UNKNOWN INDICATION
     Route: 042
     Dates: start: 20070820, end: 20071001
  3. CYCLOPHOSPHAMIDE [Suspect]
     Indication: PRODUCT USED FOR UNKNOWN INDICATION
     Dosage: DRUG: PACLITAXEL HOSPIRA
     Route: 042
     Dates: start: 20070820, end: 20071001
  4. EPIRUBICIN HYDROCHLORIDE [Suspect]
     Indication: PRODUCT USED FOR UNKNOWN INDICATION
     Route: 042
     Dates: start: 20070820, end: 20071001
  5. PACLITAXEL [Suspect]
     Indication: PRODUCT USED FOR UNKNOWN INDICATION
     Dosage: DRUG: PACLITAXEL EBEWE
     Route: 042
     Dates: start: 20110110, end: 20110201
  6. ARIMIDEX [Suspect]
     Indication: PRODUCT USED FOR UNKNOWN INDICATION
     Route: 048
     Dates: start: 20080301
  7. AROMASIN [Suspect]
     Indication: PRODUCT USED FOR UNKNOWN INDICATION
     Route: 048
     Dates: start: 20080901, end: 20110101
  8. HERCEPTIN [Suspect]
     Dates: start: 20101201
  9. TAXOTERE [Suspect]
     Indication: PRODUCT USED FOR UNKNOWN INDICATION
     Route: 042
     Dates: start: 20071022, end: 20071203
  10. PACLITAXEL [Suspect]
     Dates: start: 20110208, end: 20110524

REACTIONS (1)
  - ALOPECIA [None]
